FAERS Safety Report 7308246-X (Version None)
Quarter: 2011Q1

REPORT INFORMATION
  Report Type: 
  Country: None (occurrence: None)
  Receive Date: 20110223
  Receipt Date: 20110214
  Transmission Date: 20110831
  Serious: Yes (Hospitalization)
  Sender: FDA-Public Use
  Company Number: A0849267A

PATIENT
  Age: 70 Year
  Sex: Female

DRUGS (1)
  1. AVANDIA [Suspect]
     Indication: DIABETES MELLITUS
     Dosage: 4MG PER DAY
     Route: 048
     Dates: start: 20051205, end: 20070409

REACTIONS (5)
  - ASTHENIA [None]
  - FLUID RETENTION [None]
  - CARDIAC DISORDER [None]
  - TREMOR [None]
  - TRANSIENT ISCHAEMIC ATTACK [None]
